FAERS Safety Report 9275969 (Version 1)
Quarter: 2013Q2

REPORT INFORMATION
  Report Type: Spontaneous
  Country: US (occurrence: US)
  Receive Date: 20130507
  Receipt Date: 20130507
  Transmission Date: 20140414
  Serious: No
  Sender: FDA-Public Use
  Company Number: US-009507513-1305USA001413

PATIENT
  Sex: Female

DRUGS (2)
  1. SAPHRIS [Suspect]
     Indication: BIPOLAR DISORDER
     Dosage: UNK
     Route: 060
     Dates: start: 20130425, end: 2013
  2. WELLBUTRIN [Concomitant]

REACTIONS (1)
  - Sedation [Unknown]
